FAERS Safety Report 18190712 (Version 1)
Quarter: 2020Q3

REPORT INFORMATION
  Report Type: Spontaneous
  Country: US (occurrence: US)
  Receive Date: 20200824
  Receipt Date: 20200824
  Transmission Date: 20201103
  Serious: Yes (Hospitalization)
  Sender: FDA-Public Use
  Company Number: US-AKRON, INC.-2088982

PATIENT
  Age: 23 Year
  Sex: Male

DRUGS (7)
  1. COGENTIN [Suspect]
     Active Substance: BENZTROPINE MESYLATE
  2. COGENTIN [Suspect]
     Active Substance: BENZTROPINE MESYLATE
  3. SEROQUEL [Suspect]
     Active Substance: QUETIAPINE FUMARATE
  4. INVEGA [Suspect]
     Active Substance: PALIPERIDONE
  5. ABILIFY MAINTENA [Suspect]
     Active Substance: ARIPIPRAZOLE
  6. RISPERDAL [Suspect]
     Active Substance: RISPERIDONE
  7. ABILIFY [Suspect]
     Active Substance: ARIPIPRAZOLE

REACTIONS (8)
  - Confusional state [Unknown]
  - Insomnia [Unknown]
  - Hallucination, visual [Recovered/Resolved]
  - Hallucination, auditory [Not Recovered/Not Resolved]
  - Daydreaming [Unknown]
  - Memory impairment [Not Recovered/Not Resolved]
  - Muscle twitching [Not Recovered/Not Resolved]
  - Dyskinesia [Not Recovered/Not Resolved]
